FAERS Safety Report 10249975 (Version 2)
Quarter: 2014Q2

REPORT INFORMATION
  Report Type: Spontaneous
  Country: CA (occurrence: CA)
  Receive Date: 20140620
  Receipt Date: 20140620
  Transmission Date: 20141212
  Serious: Yes (Death, Hospitalization, Other)
  Sender: FDA-Public Use
  Company Number: CA-NAPPMUNDI-CAN-2013-0004556

PATIENT
  Age: 47 Year
  Sex: Female

DRUGS (14)
  1. OXYNEO [Suspect]
     Indication: PRODUCT USED FOR UNKNOWN INDICATION
     Dosage: UNK
     Route: 065
  2. OXYCONTIN TABLETS [Interacting]
     Indication: PRODUCT USED FOR UNKNOWN INDICATION
     Dosage: UNK
     Route: 065
  3. OXYCODONE [Interacting]
     Indication: PRODUCT USED FOR UNKNOWN INDICATION
     Dosage: UNK
     Route: 065
  4. MORPHINE SULFATE [Interacting]
     Indication: PRODUCT USED FOR UNKNOWN INDICATION
     Dosage: 10 MG, UNK
     Route: 065
     Dates: start: 20120607
  5. DILAUDID [Interacting]
     Indication: PRODUCT USED FOR UNKNOWN INDICATION
     Dosage: 2-4 MG, PRN
     Route: 065
     Dates: end: 20120620
  6. ENDOCET [Interacting]
     Indication: PRODUCT USED FOR UNKNOWN INDICATION
     Dosage: UNK
     Route: 065
  7. FENTANYL [Interacting]
     Indication: PRODUCT USED FOR UNKNOWN INDICATION
     Dosage: 75 MCG/HR, UNK
     Route: 062
     Dates: end: 20120620
  8. FENTANYL [Interacting]
     Dosage: 150 MCG/HR, UNK
     Route: 062
     Dates: start: 20120620
  9. NARCOTICS [Interacting]
     Indication: PRODUCT USED FOR UNKNOWN INDICATION
  10. ALCOHOL [Interacting]
     Indication: PRODUCT USED FOR UNKNOWN INDICATION
     Dosage: UNK
     Route: 065
  11. NICOTINE [Interacting]
     Indication: PRODUCT USED FOR UNKNOWN INDICATION
     Dosage: UNK
     Route: 065
  12. FLEXERIL                           /00428402/ [Interacting]
     Indication: PRODUCT USED FOR UNKNOWN INDICATION
     Dosage: 40 MG, DAILY
     Route: 065
  13. AMITRIPTYLINE [Interacting]
     Indication: PRODUCT USED FOR UNKNOWN INDICATION
  14. NAPROXEN                           /00256202/ [Interacting]
     Indication: PRODUCT USED FOR UNKNOWN INDICATION
     Dosage: UNK
     Route: 065

REACTIONS (33)
  - Overdose [Fatal]
  - Cardiac death [Fatal]
  - Myocardial infarction [Fatal]
  - Infection [Unknown]
  - Pulmonary oedema [Unknown]
  - Drug interaction [Unknown]
  - Intentional product misuse [Unknown]
  - Loss of consciousness [Unknown]
  - Respiratory arrest [Fatal]
  - Gastric dilatation [Unknown]
  - Anxiety [Unknown]
  - Emotional disorder [Unknown]
  - Dysarthria [Unknown]
  - Gait disturbance [Unknown]
  - Functional gastrointestinal disorder [Unknown]
  - Tachycardia [Unknown]
  - Mental impairment [Unknown]
  - Drug tolerance [Unknown]
  - Malaise [Unknown]
  - Nausea [Unknown]
  - Sedation [Unknown]
  - Somnolence [Unknown]
  - Dizziness [Unknown]
  - Depressed mood [Unknown]
  - Paraesthesia [Unknown]
  - Self-medication [None]
  - Somnolence [None]
  - Feeling abnormal [None]
  - Crying [None]
  - Conversion disorder [None]
  - Cardiac failure [None]
  - Spinal cord infection [None]
  - Panic reaction [None]
